FAERS Safety Report 22196937 (Version 1)
Quarter: 2023Q2

REPORT INFORMATION
  Report Type: Spontaneous
  Country: CN (occurrence: CN)
  Receive Date: 20230411
  Receipt Date: 20230411
  Transmission Date: 20230721
  Serious: Yes (Hospitalization)
  Sender: FDA-Public Use
  Company Number: None

PATIENT
  Age: 15 Year
  Sex: Female
  Weight: 39.3 kg

DRUGS (12)
  1. CYCLOPHOSPHAMIDE [Suspect]
     Active Substance: CYCLOPHOSPHAMIDE
     Indication: Acute lymphocytic leukaemia
     Dosage: 400 MG, QD, DILUTED WITH 250 ML OF 0.9% SODIUM CHLORIDE
     Route: 041
     Dates: start: 20230225, end: 20230225
  2. CYCLOPHOSPHAMIDE [Suspect]
     Active Substance: CYCLOPHOSPHAMIDE
     Indication: T-cell type acute leukaemia
  3. SODIUM CHLORIDE [Suspect]
     Active Substance: SODIUM CHLORIDE
     Indication: Medication dilution
     Dosage: 90 ML, QD, USED TO DILUTE 35 MG CYTARABINE HYDROCHLORIDE AND 10 MG METHOTREXATE, DOSAGE FORM: INJECT
     Route: 037
     Dates: start: 20230225, end: 20230225
  4. SODIUM CHLORIDE [Suspect]
     Active Substance: SODIUM CHLORIDE
     Dosage: 0.9% 250 ML, QD, USED TO DILUTE 400 MG CYTARABINE HYDROCHLORIDE, DOSAGE FORM: INJECTION
     Route: 041
     Dates: start: 20230225, end: 20230225
  5. SODIUM CHLORIDE [Suspect]
     Active Substance: SODIUM CHLORIDE
     Dosage: 0.9% 250 ML, QD, USED TO DILUTE 400 MG CYCLOPHOSPHAMIDE, DOSAGE FORM: INJECTION
     Route: 041
     Dates: start: 20230225, end: 20230225
  6. SODIUM CHLORIDE [Suspect]
     Active Substance: SODIUM CHLORIDE
     Dosage: 0.9% 50 ML, QD, USED TO DILUTE 2 MG VINCRISTINE SULFATE, DOSAGE FORM: INJECTION
     Route: 041
     Dates: start: 20230225, end: 20230225
  7. METHOTREXATE [Suspect]
     Active Substance: METHOTREXATE
     Indication: Acute lymphocytic leukaemia
     Dosage: 10 MG, QD, DILUTED WITH 90 ML SODIUM CHLORIDE AND 35 MG CYTARABINE HYDROCHLORIDE
     Route: 037
     Dates: start: 20230225, end: 20230225
  8. METHOTREXATE [Suspect]
     Active Substance: METHOTREXATE
     Indication: T-cell type acute leukaemia
  9. CYTARABINE HYDROCHLORIDE [Suspect]
     Active Substance: CYTARABINE HYDROCHLORIDE
     Indication: Acute lymphocytic leukaemia
     Dosage: 400 MG, QD, DILUTED WITH 250 ML OF 0.9% SODIUM CHLORIDE
     Route: 041
     Dates: start: 20230225, end: 20230225
  10. CYTARABINE HYDROCHLORIDE [Suspect]
     Active Substance: CYTARABINE HYDROCHLORIDE
     Indication: T-cell type acute leukaemia
     Dosage: 35 MG, QD, DILUTED WITH 90 ML SODIUM CHLORIDE AND 10 MG METHOTREXATE
     Route: 037
     Dates: start: 20230225, end: 20230225
  11. VINCRISTINE SULFATE [Suspect]
     Active Substance: VINCRISTINE SULFATE
     Indication: Acute lymphocytic leukaemia
     Dosage: 2 MG, QD, DILUTED WITH 50 ML OF 0.9% SODIUM CHLORIDE
     Route: 041
     Dates: start: 20230225, end: 20230225
  12. VINCRISTINE SULFATE [Suspect]
     Active Substance: VINCRISTINE SULFATE
     Indication: T-cell type acute leukaemia

REACTIONS (1)
  - Granulocyte count decreased [Unknown]

NARRATIVE: CASE EVENT DATE: 20230323
